FAERS Safety Report 4962996-9 (Version None)
Quarter: 2006Q2

REPORT INFORMATION
  Report Type: 
  Country: None (occurrence: None)
  Receive Date: 20060405
  Receipt Date: 20060324
  Transmission Date: 20061013
  Serious: Yes (Other)
  Sender: FDA-Public Use
  Company Number: US-JNJFOC-20060304662

PATIENT
  Sex: Female
  Weight: 72.58 kg

DRUGS (9)
  1. REMICADE [Suspect]
     Dosage: 3 VIALS
     Route: 042
  2. REMICADE [Suspect]
     Dosage: 3 VIALS
     Route: 042
  3. REMICADE [Suspect]
     Indication: RHEUMATOID ARTHRITIS
     Dosage: 3 VIALS
     Route: 042
  4. ACTONEL [Concomitant]
     Indication: OSTEOPENIA
  5. GEMFIBROZIL [Concomitant]
  6. OMEPRAZOLE [Concomitant]
  7. TRIAMTERENE [Concomitant]
     Dosage: 37.5/25 DAILY
  8. ASPIRIN [Concomitant]
  9. CALCIUM +D [Concomitant]

REACTIONS (8)
  - BACK PAIN [None]
  - BLOOD PRESSURE DECREASED [None]
  - BUTTOCK PAIN [None]
  - HEART RATE INCREASED [None]
  - HOT FLUSH [None]
  - INFUSION RELATED REACTION [None]
  - LOSS OF CONSCIOUSNESS [None]
  - NAUSEA [None]
